FAERS Safety Report 8854518 (Version 1)
Quarter: 2012Q4

REPORT INFORMATION
  Report Type: 
  Country: FR (occurrence: FR)
  Receive Date: 20121023
  Receipt Date: 20121023
  Transmission Date: 20130627
  Serious: Yes (Other)
  Sender: FDA-Public Use
  Company Number: FR-PFIZER INC-2012258949

PATIENT
  Sex: Female

DRUGS (2)
  1. REVATIO [Suspect]
     Indication: PULMONARY HYPERTENSION
     Dosage: 10 mg, 3x/day
  2. REVATIO [Suspect]
     Dosage: 20 mg, 3x/day

REACTIONS (3)
  - Cardiac disorder [Unknown]
  - Nausea [Unknown]
  - Vomiting [Unknown]
